FAERS Safety Report 9302039 (Version 3)
Quarter: 2014Q2

REPORT INFORMATION
  Report Type: Spontaneous
  Country: US (occurrence: US)
  Receive Date: 20130521
  Receipt Date: 20140520
  Transmission Date: 20141212
  Serious: Yes (Death, Life-Threatening)
  Sender: FDA-Public Use
  Company Number: US-B.I. PHARMACEUTICALS,INC./RIDGEFIELD-2013-BI-14124BP

PATIENT
  Age: 74 Year
  Sex: Female
  Weight: 68.04 kg

DRUGS (16)
  1. PRADAXA [Suspect]
     Indication: ANTICOAGULANT THERAPY
     Dosage: 300 MG
     Route: 048
     Dates: start: 20120716, end: 20120716
  2. PRADAXA [Suspect]
     Indication: SUPRAVENTRICULAR TACHYCARDIA
  3. PRADAXA [Suspect]
     Indication: ATRIAL FIBRILLATION
  4. IPRATROPIUM BROMIDE [Concomitant]
     Route: 055
  5. ITRACONAZOLE [Concomitant]
     Dosage: 400 MG
     Route: 048
  6. LEVALBUTEROL [Concomitant]
     Dosage: 5 MG
     Route: 055
  7. LEVOFLOXACIN [Concomitant]
     Dosage: 750 MG
     Route: 048
  8. LISINOPRIL [Concomitant]
     Dosage: 10 MG
     Route: 065
  9. MEROPENEM [Concomitant]
     Dosage: 1500 MG
     Route: 042
  10. NOVOLOG [Concomitant]
     Route: 065
  11. LEVEMIR [Concomitant]
     Dosage: 10 U
     Route: 065
  12. DILTIAZEM [Concomitant]
     Dosage: 240 MG
     Route: 048
  13. ENOXAPARIN SODIUM [Concomitant]
     Dosage: 140 MG
     Route: 058
  14. FUROSEMIDE [Concomitant]
     Dosage: 20 MG
     Route: 048
  15. GLIMEPIRIDE [Concomitant]
     Dosage: 1 MG
     Route: 048
  16. ASPIRIN [Concomitant]
     Dosage: 81 MG
     Route: 048

REACTIONS (6)
  - Retroperitoneal haemorrhage [Fatal]
  - Shock haemorrhagic [Fatal]
  - Disseminated intravascular coagulation [Fatal]
  - Cardio-respiratory arrest [Fatal]
  - Cardio-respiratory arrest [Recovered/Resolved]
  - Cardio-respiratory arrest [Recovered/Resolved]
